FAERS Safety Report 6929941-8 (Version None)
Quarter: 2010Q3

REPORT INFORMATION
  Report Type: 
  Country: None (occurrence: None)
  Receive Date: 20100817
  Receipt Date: 20100817
  Transmission Date: 20110219
  Serious: Yes (Life-Threatening)
  Sender: FDA-Public Use
  Company Number: None

PATIENT
  Age: 79 Year
  Sex: Male
  Weight: 83.9154 kg

DRUGS (1)
  1. CILOSTAZOL [Suspect]
     Indication: PAIN IN EXTREMITY
     Dosage: 100 MG 2 TIME DAY
     Dates: start: 20100728, end: 20100731

REACTIONS (1)
  - BLOOD URINE PRESENT [None]
